FAERS Safety Report 4953615-6 (Version None)
Quarter: 2006Q1

REPORT INFORMATION
  Report Type: 
  Country: None (occurrence: None)
  Receive Date: 20060324
  Receipt Date: 20060315
  Transmission Date: 20060701
  Serious: Yes (Death, Hospitalization)
  Sender: FDA-Public Use
  Company Number: US-MERCK-0603USA02692

PATIENT
  Age: 70 Year
  Sex: Male
  Weight: 107 kg

DRUGS (3)
  1. VIOXX [Suspect]
     Indication: ARTHRITIS
     Route: 065
     Dates: start: 19990101, end: 20020101
  2. VIOXX [Suspect]
     Route: 065
     Dates: start: 19990101, end: 20020101
  3. BENADRYL [Concomitant]
     Route: 065

REACTIONS (6)
  - CORONARY ARTERY DISEASE [None]
  - CRYPTOGENIC CIRRHOSIS [None]
  - HAEMORRHAGE [None]
  - MYOCARDIAL INFARCTION [None]
  - OVERDOSE [None]
  - PULMONARY FIBROSIS [None]
